FAERS Safety Report 5476164-8 (Version None)
Quarter: 2007Q4

REPORT INFORMATION
  Report Type: 
  Country: None (occurrence: None)
  Receive Date: 20071003
  Receipt Date: 20070925
  Transmission Date: 20080405
  Serious: Yes (Hospitalization)
  Sender: FDA-Public Use
  Company Number: FR-JNJFOC-20070905514

PATIENT
  Sex: Female

DRUGS (8)
  1. RISPERDAL [Suspect]
     Indication: GENERAL PHYSICAL HEALTH DETERIORATION
     Route: 048
  2. ALDACTAZIDE [Suspect]
     Indication: DRUG USE FOR UNKNOWN INDICATION
     Route: 048
  3. LAROXYL ROCHE [Suspect]
     Route: 048
  4. LAROXYL ROCHE [Suspect]
     Indication: GENERAL PHYSICAL HEALTH DETERIORATION
     Route: 048
  5. TRIVASTAL [Suspect]
     Indication: DRUG USE FOR UNKNOWN INDICATION
     Route: 048
  6. LEVOTHYROX [Concomitant]
  7. METOPROLOL TARTRATE [Concomitant]
  8. PREVISCAN [Concomitant]

REACTIONS (2)
  - CONFUSIONAL STATE [None]
  - HYPONATRAEMIA [None]
